FAERS Safety Report 11669020 (Version 4)
Quarter: 2018Q4

REPORT INFORMATION
  Report Type: Spontaneous
  Country: US (occurrence: US)
  Receive Date: 20151027
  Receipt Date: 20181226
  Transmission Date: 20190204
  Serious: Yes (Hospitalization)
  Sender: FDA-Public Use
  Company Number: US-PFIZER INC-2015358599

PATIENT
  Age: 60 Year
  Sex: Male
  Weight: 75 kg

DRUGS (10)
  1. RAPAMUNE [Suspect]
     Active Substance: SIROLIMUS
     Dosage: 2 MG, DAILY
     Route: 048
     Dates: start: 20170614
  2. AMLODIPINE [Concomitant]
     Active Substance: AMLODIPINE BESYLATE
     Dosage: 10 MG, UNK
  3. ZYPREXA [Concomitant]
     Active Substance: OLANZAPINE
     Dosage: 15 MG, UNK
  4. RAPAMUNE [Suspect]
     Active Substance: SIROLIMUS
     Indication: LIVER TRANSPLANT
     Dosage: 4 MG, 1X/DAY
     Route: 048
     Dates: start: 201403
  5. ZYRTEC [Concomitant]
     Active Substance: CETIRIZINE HYDROCHLORIDE
     Dosage: 10 MG, UNK
  6. LIPITOR [Concomitant]
     Active Substance: ATORVASTATIN CALCIUM
     Dosage: 10 MG, UNK
  7. RAPAMUNE [Suspect]
     Active Substance: SIROLIMUS
     Indication: HEPATOCELLULAR CARCINOMA
     Dosage: 2 MG, DAILY
     Route: 048
     Dates: start: 20161017
  8. LEVOTHYROXINE. [Concomitant]
     Active Substance: LEVOTHYROXINE
     Dosage: 100 UG, UNK
  9. AMIODARONE [Concomitant]
     Active Substance: AMIODARONE
     Dosage: 200 MG, UNK
  10. LEXAPRO [Concomitant]
     Active Substance: ESCITALOPRAM OXALATE
     Dosage: 10 MG, UNK

REACTIONS (2)
  - Product use in unapproved indication [Not Recovered/Not Resolved]
  - Pleural effusion [Recovered/Resolved]

NARRATIVE: CASE EVENT DATE: 201403
